FAERS Safety Report 8873129 (Version 1)
Quarter: 2012Q4

REPORT INFORMATION
  Report Type: 
  Country: US (occurrence: US)
  Receive Date: 20121030
  Receipt Date: 20121030
  Transmission Date: 20130627
  Serious: No
  Sender: FDA-Public Use
  Company Number: US-ABBOTT-12P-163-0919480-00

PATIENT
  Age: 32 Year
  Sex: Female
  Weight: 158.9 kg

DRUGS (4)
  1. LUPRON DEPOT 3.75 MG [Suspect]
     Indication: UTERINE LEIOMYOMA
     Dates: start: 20120328
  2. SYNTHROID [Concomitant]
     Indication: HYPOTHYROIDISM
  3. IRON [Concomitant]
     Indication: MINERAL SUPPLEMENTATION
  4. IBUPROFEN [Concomitant]
     Indication: PAIN

REACTIONS (1)
  - Menorrhagia [Not Recovered/Not Resolved]
